FAERS Safety Report 26108992 (Version 2)
Quarter: 2025Q4

REPORT INFORMATION
  Report Type: Report from Study
  Country: EU (occurrence: EU)
  Receive Date: 20251201
  Receipt Date: 20251214
  Transmission Date: 20260118
  Serious: Yes (Death, Other)
  Sender: TAKEDA
  Company Number: EU-TAKEDA-2025TUS092608

PATIENT
  Age: 85 Year
  Sex: Female

DRUGS (1)
  1. APADAMTASE ALFA [Suspect]
     Active Substance: APADAMTASE ALFA
     Indication: Thrombotic thrombocytopenic purpura
     Dosage: UNK

REACTIONS (3)
  - Neoplasm malignant [Fatal]
  - Thrombocytopenia [Unknown]
  - Depression [Unknown]
